FAERS Safety Report 14831891 (Version 11)
Quarter: 2021Q3

REPORT INFORMATION
  Report Type: Spontaneous
  Country: FR (occurrence: FR)
  Receive Date: 20180501
  Receipt Date: 20210731
  Transmission Date: 20211014
  Serious: Yes (Hospitalization, Other)
  Sender: FDA-Public Use
  Company Number: PHHY2018FR074582

PATIENT
  Age: 3 Year
  Sex: Female

DRUGS (21)
  1. CYTARABINE. [Suspect]
     Active Substance: CYTARABINE
     Dosage: 174 MG, UNK
     Route: 065
     Dates: start: 20171027, end: 20171030
  2. DEXAMETHASONE. [Suspect]
     Active Substance: DEXAMETHASONE
     Dosage: 42 MG, QW
     Route: 065
     Dates: start: 20171009, end: 20171015
  3. XALUPRINE [Suspect]
     Active Substance: MERCAPTOPURINE
     Dosage: 14 MG, UNK
     Route: 048
     Dates: start: 20180116
  4. METHOTREXATE. [Suspect]
     Active Substance: METHOTREXATE
     Indication: ACUTE LYMPHOCYTIC LEUKAEMIA
     Dosage: 12 MG, UNK
     Route: 037
     Dates: start: 20170928, end: 20171027
  5. METHOTREXATE. [Suspect]
     Active Substance: METHOTREXATE
     Dosage: 300 MG, UNK
     Route: 042
     Dates: start: 20171211, end: 20171211
  6. METHOTREXATE. [Suspect]
     Active Substance: METHOTREXATE
     Dosage: 15 MG, UNK
     Route: 048
     Dates: start: 20171211, end: 20171226
  7. CYCLOPHOSPHAMIDE. [Suspect]
     Active Substance: CYCLOPHOSPHAMIDE
     Indication: ACUTE LYMPHOCYTIC LEUKAEMIA
     Dosage: 580 MG, UNK
     Route: 065
     Dates: start: 20171025, end: 20171112
  8. DEXAMETHASONE. [Suspect]
     Active Substance: DEXAMETHASONE
     Indication: ACUTE LYMPHOCYTIC LEUKAEMIA
     Dosage: 42 MG, UNK
     Route: 065
     Dates: start: 20170925, end: 20171001
  9. PEGASPARGASE [Suspect]
     Active Substance: PEGASPARGASE
     Indication: ACUTE LYMPHOCYTIC LEUKAEMIA
     Dosage: 1425 IU, UNK
     Route: 042
     Dates: start: 20170928, end: 20171113
  10. METHOTREXATE. [Suspect]
     Active Substance: METHOTREXATE
     Dosage: 12 MG, UNK
     Route: 037
     Dates: start: 20171219, end: 20171219
  11. CYTARABINE. [Suspect]
     Active Substance: CYTARABINE
     Indication: ACUTE LYMPHOCYTIC LEUKAEMIA
     Dosage: 30 MG, UNK
     Route: 037
     Dates: start: 20170928, end: 20171027
  12. VINCRISTINE [Suspect]
     Active Substance: VINCRISTINE
     Indication: ACUTE LYMPHOCYTIC LEUKAEMIA
     Dosage: 0.86 MG, UNK
     Route: 042
     Dates: start: 20170925, end: 20171009
  13. CYTARABINE. [Suspect]
     Active Substance: CYTARABINE
     Dosage: 174 MG, UNK
     Route: 065
     Dates: start: 20171103, end: 20171106
  14. VINCRISTINE [Suspect]
     Active Substance: VINCRISTINE
     Dosage: 0.87 MG, UNK
     Route: 042
     Dates: start: 20171113, end: 20171120
  15. PREDNISOLONE. [Suspect]
     Active Substance: PREDNISOLONE
     Indication: ACUTE LYMPHOCYTIC LEUKAEMIA
     Dosage: UNK
     Route: 037
  16. XALUPRINE [Suspect]
     Active Substance: MERCAPTOPURINE
     Indication: ACUTE LYMPHOCYTIC LEUKAEMIA
     Dosage: 14 MG, UNK
     Route: 048
  17. XALUPRINE [Suspect]
     Active Substance: MERCAPTOPURINE
     Dosage: 30 MG, UNK
     Route: 048
     Dates: start: 20171211, end: 20171227
  18. 6?MERCAPTOPURINE MONOHYDRATE [Suspect]
     Active Substance: MERCAPTOPURINE
     Indication: ACUTE LYMPHOCYTIC LEUKAEMIA
     Dosage: 490 MG, UNK
     Route: 065
     Dates: start: 20171025, end: 20171112
  19. METHOTREXATE. [Suspect]
     Active Substance: METHOTREXATE
     Dosage: 7.5 MG, UNK
     Route: 048
     Dates: start: 20180116
  20. DOXORUBICIN [Suspect]
     Active Substance: DOXORUBICIN
     Indication: ACUTE LYMPHOCYTIC LEUKAEMIA
     Dosage: 14.4 MG, UNK
     Route: 042
     Dates: start: 20170925, end: 20171009
  21. CORTICOSTEROID NOS [Suspect]
     Active Substance: CORTICOSTEROID NOS
     Indication: ACUTE LYMPHOCYTIC LEUKAEMIA
     Dosage: 15 MG, UNK
     Route: 037
     Dates: start: 20170928, end: 20171027

REACTIONS (6)
  - Otitis media acute [Recovered/Resolved]
  - Febrile bone marrow aplasia [Recovered/Resolved]
  - Pulmonary haemorrhage [Recovered/Resolved]
  - Respiratory syncytial virus infection [Recovered/Resolved]
  - Febrile bone marrow aplasia [Recovered/Resolved]
  - Lung disorder [Recovered/Resolved]

NARRATIVE: CASE EVENT DATE: 20171020
